FAERS Safety Report 5895003-4 (Version None)
Quarter: 2008Q3

REPORT INFORMATION
  Report Type: 
  Country: None (occurrence: None)
  Receive Date: 20080924
  Receipt Date: 20080916
  Transmission Date: 20090109
  Serious: Yes (Hospitalization)
  Sender: FDA-Public Use
  Company Number: GB-ROCHE-586348

PATIENT
  Sex: Female

DRUGS (1)
  1. ORLISTAT [Suspect]
     Indication: OBESITY
     Dosage: THE PATIENT HAS NOT BEEN TAKING THE MEDICATION AS PRESCRIBED
     Route: 048
     Dates: start: 20070901

REACTIONS (1)
  - ABSCESS [None]
